FAERS Safety Report 8983973 (Version 1)
Quarter: 2012Q4

REPORT INFORMATION
  Report Type: Spontaneous
  Country: US (occurrence: None)
  Receive Date: 20121218
  Receipt Date: 20121218
  Transmission Date: 20130627
  Serious: Yes (Life-Threatening)
  Sender: FDA-Public Use
  Company Number: None

PATIENT
  Age: 52 Year
  Sex: Male
  Weight: 99.34 kg

DRUGS (1)
  1. ANDROGEL 1% [Suspect]
     Indication: TESTOSTERONE LOW
     Route: 061

REACTIONS (1)
  - Thrombosis [None]
